FAERS Safety Report 5541458-4 (Version None)
Quarter: 2007Q4

REPORT INFORMATION
  Report Type: 
  Country: None (occurrence: None)
  Receive Date: 20071210
  Receipt Date: 20071127
  Transmission Date: 20080405
  Serious: Yes (Hospitalization, Other)
  Sender: FDA-Public Use
  Company Number: US-JNJFOC-20071109748

PATIENT
  Sex: Male

DRUGS (4)
  1. PREZISTA [Suspect]
     Indication: HIV INFECTION
     Route: 048
     Dates: start: 20071004, end: 20071123
  2. RALTEGRAVIR [Concomitant]
     Route: 048
     Dates: start: 20071004, end: 20071123
  3. NORVIR [Concomitant]
     Route: 048
     Dates: start: 20071004, end: 20071123
  4. VIDEX EC [Concomitant]
     Route: 065

REACTIONS (1)
  - HEPATITIS ACUTE [None]
